FAERS Safety Report 9934463 (Version 2)
Quarter: 2014Q1

REPORT INFORMATION
  Report Type: Spontaneous
  Country: GB (occurrence: GB)
  Receive Date: 20140228
  Receipt Date: 20140228
  Transmission Date: 20141002
  Serious: Yes (Other)
  Sender: FDA-Public Use
  Company Number: PHFR2014GB000753

PATIENT
  Sex: Female
  Weight: 80 kg

DRUGS (4)
  1. CLOZARIL [Suspect]
     Indication: SCHIZOPHRENIA
     Dosage: UNK UKN, UNK
     Route: 048
     Dates: start: 20130725
  2. CLOZARIL [Suspect]
     Dosage: 300 MG, UNK
     Route: 048
     Dates: start: 201310
  3. DEPAKOTE [Concomitant]
     Indication: MOOD SWINGS
     Dosage: 200 MG, UNK
     Route: 048
     Dates: start: 2003
  4. LANSOPRAZOLE [Concomitant]
     Indication: DYSPEPSIA
     Dosage: 30 MG, UNK
     Route: 048

REACTIONS (5)
  - Dyspnoea [Unknown]
  - Tachycardia [Not Recovered/Not Resolved]
  - Alopecia [Not Recovered/Not Resolved]
  - Wheezing [Not Recovered/Not Resolved]
  - Panic attack [Not Recovered/Not Resolved]
